FAERS Safety Report 11247410 (Version 1)
Quarter: 2015Q3

REPORT INFORMATION
  Report Type: Spontaneous
  Country: US (occurrence: None)
  Receive Date: 20150707
  Receipt Date: 20150707
  Transmission Date: 20151125
  Serious: Yes (Life-Threatening, Hospitalization)
  Sender: FDA-Public Use
  Company Number: None

PATIENT
  Age: 65 Year
  Sex: Male
  Weight: 62 kg

DRUGS (7)
  1. OXYCODONE [Concomitant]
     Active Substance: OXYCODONE
  2. CETUXIMAB 250 MG/M2 IV [Suspect]
     Active Substance: CETUXIMAB
     Indication: NEOPLASM RECURRENCE
     Route: 042
     Dates: start: 20141103, end: 20150621
  3. PALBOTICLIB 125 MG [Suspect]
     Active Substance: PALBOCICLIB
     Indication: SQUAMOUS CELL CARCINOMA OF HEAD AND NECK
     Dosage: D 1-21 Q28
     Route: 048
     Dates: start: 20141103, end: 20150622
  4. CETUXIMAB 250 MG/M2 IV [Suspect]
     Active Substance: CETUXIMAB
     Indication: SQUAMOUS CELL CARCINOMA OF HEAD AND NECK
     Route: 042
     Dates: start: 20141103, end: 20150621
  5. LIOCAINE [Concomitant]
  6. PALBOTICLIB 125 MG [Suspect]
     Active Substance: PALBOCICLIB
     Indication: NEOPLASM RECURRENCE
     Dosage: D 1-21 Q28
     Route: 048
     Dates: start: 20141103, end: 20150622
  7. MORPHINE [Concomitant]
     Active Substance: MORPHINE

REACTIONS (2)
  - Tongue haemorrhage [None]
  - Haemoglobin decreased [None]

NARRATIVE: CASE EVENT DATE: 20150630
